FAERS Safety Report 10793958 (Version 1)
Quarter: 2015Q1

REPORT INFORMATION
  Report Type: Report from Study
  Country: US (occurrence: US)
  Receive Date: 20150213
  Receipt Date: 20150213
  Transmission Date: 20150721
  Serious: Yes (Other)
  Sender: FDA-Public Use
  Company Number: US-EMD SERONO-7214959

PATIENT
  Age: 12 Year
  Sex: Male
  Weight: 43 kg

DRUGS (7)
  1. CYPROHEPTADINE HYDROCHLORIDE. [Concomitant]
     Active Substance: CYPROHEPTADINE HYDROCHLORIDE
     Indication: PRODUCT USED FOR UNKNOWN INDICATION
  2. SAIZEN [Suspect]
     Active Substance: SOMATROPIN
     Indication: BODY HEIGHT BELOW NORMAL
     Route: 058
     Dates: start: 20110320
  3. LEVALBUTEROL HYDROCHLORIDE. [Concomitant]
     Active Substance: LEVALBUTEROL HYDROCHLORIDE
     Indication: PRODUCT USED FOR UNKNOWN INDICATION
  4. PULMICORT TURBUHALER [Concomitant]
     Active Substance: BUDESONIDE
     Indication: PRODUCT USED FOR UNKNOWN INDICATION
  5. SAIZEN [Suspect]
     Active Substance: SOMATROPIN
     Indication: GROWTH HORMONE DEFICIENCY
     Route: 058
  6. SAIZEN [Suspect]
     Active Substance: SOMATROPIN
     Indication: DWARFISM
  7. VENTOLIN [Concomitant]
     Active Substance: ALBUTEROL SULFATE
     Indication: PRODUCT USED FOR UNKNOWN INDICATION

REACTIONS (13)
  - Blood urea nitrogen/creatinine ratio increased [Recovered/Resolved]
  - Influenza [Unknown]
  - Blood albumin increased [Recovered/Resolved]
  - Vitamin D deficiency [Unknown]
  - Pneumonia staphylococcal [Unknown]
  - Viral infection [Unknown]
  - Haemoglobin increased [Recovered/Resolved]
  - Bronchiectasis [Unknown]
  - Blood urea increased [Recovered/Resolved]
  - Blood potassium increased [Recovered/Resolved]
  - Gastrooesophageal reflux disease [Unknown]
  - Implant site haematoma [Unknown]
  - White blood cell count decreased [Recovered/Resolved]

NARRATIVE: CASE EVENT DATE: 20110427
